FAERS Safety Report 13525587 (Version 1)
Quarter: 2017Q2

REPORT INFORMATION
  Report Type: Spontaneous
  Country: IN (occurrence: IN)
  Receive Date: 20170508
  Receipt Date: 20170508
  Transmission Date: 20170830
  Serious: Yes (Other)
  Sender: FDA-Public Use
  Company Number: PHHY2017IN064018

PATIENT
  Age: 28 Year
  Sex: Female

DRUGS (3)
  1. ACITROM [Concomitant]
     Active Substance: ACENOCOUMAROL
     Indication: CORONARY ARTERY DISEASE
     Dosage: 2 MG, QD
     Route: 065
  2. FRUSEMIDE [Concomitant]
     Active Substance: FUROSEMIDE
     Indication: CORONARY ARTERY DISEASE
     Dosage: 40 MG, QW
     Route: 065
  3. DIGOXIN. [Suspect]
     Active Substance: DIGOXIN
     Indication: CORONARY ARTERY DISEASE
     Dosage: 0.25 MG, QD
     Route: 065

REACTIONS (7)
  - Tooth demineralisation [Unknown]
  - Gingival erythema [Unknown]
  - Gingival hypertrophy [Unknown]
  - Gingival bleeding [Unknown]
  - Tooth disorder [Unknown]
  - Gingival swelling [Unknown]
  - Periodontitis [Unknown]
